FAERS Safety Report 23061315 (Version 1)
Quarter: 2023Q4

REPORT INFORMATION
  Report Type: Spontaneous
  Country: CN (occurrence: None)
  Receive Date: 20231013
  Receipt Date: 20231013
  Transmission Date: 20240110
  Serious: Yes (Disabling)
  Sender: FDA-Public Use
  Company Number: CN-ROCHE-3437558

PATIENT
  Age: 47 Year
  Sex: Male
  Weight: 76 kg

DRUGS (6)
  1. OBINUTUZUMAB [Suspect]
     Active Substance: OBINUTUZUMAB
     Indication: Non-Hodgkin^s lymphoma
     Route: 042
     Dates: start: 20230917, end: 20231003
  2. CYCLOPHOSPHAMIDE [Suspect]
     Active Substance: CYCLOPHOSPHAMIDE
     Indication: Non-Hodgkin^s lymphoma
     Route: 041
     Dates: start: 20230918, end: 20231003
  3. EPIRUBICIN [Suspect]
     Active Substance: EPIRUBICIN
     Indication: Non-Hodgkin^s lymphoma
     Route: 041
     Dates: start: 20230918, end: 20231003
  4. VINORELBINE TARTRATE [Suspect]
     Active Substance: VINORELBINE TARTRATE
     Indication: Non-Hodgkin^s lymphoma
     Route: 041
     Dates: start: 20230918, end: 20231003
  5. SODIUM CHLORIDE [Concomitant]
     Active Substance: SODIUM CHLORIDE
     Route: 041
     Dates: start: 20230917, end: 20231003
  6. SODIUM CHLORIDE [Concomitant]
     Active Substance: SODIUM CHLORIDE
     Route: 041
     Dates: start: 20230918, end: 20231003

REACTIONS (1)
  - Myelosuppression [Recovering/Resolving]

NARRATIVE: CASE EVENT DATE: 20231003
